FAERS Safety Report 11799089 (Version 1)
Quarter: 2015Q4

REPORT INFORMATION
  Report Type: Report from Study
  Country: US (occurrence: US)
  Receive Date: 20151203
  Receipt Date: 20151203
  Transmission Date: 20160305
  Serious: No
  Sender: FDA-Public Use
  Company Number: US-AMGEN-USASL2015116070

PATIENT
  Age: 70 Year
  Sex: Female
  Weight: 77.55 kg

DRUGS (1)
  1. REPATHA [Suspect]
     Active Substance: EVOLOCUMAB
     Indication: HYPERCHOLESTEROLAEMIA
     Dosage: 140 MG, Q2WK
     Route: 058
     Dates: start: 20151006

REACTIONS (3)
  - Dysgeusia [Recovered/Resolved]
  - Influenza like illness [Unknown]
  - Pain [Unknown]

NARRATIVE: CASE EVENT DATE: 2015
